FAERS Safety Report 6549083-3 (Version None)
Quarter: 2010Q1

REPORT INFORMATION
  Report Type: 
  Country: None (occurrence: None)
  Receive Date: 20100125
  Receipt Date: 20100119
  Transmission Date: 20100710
  Serious: Yes (Hospitalization)
  Sender: FDA-Public Use
  Company Number: KR-ROCHE-676604

PATIENT
  Age: 3 Year
  Sex: Male
  Weight: 13.8 kg

DRUGS (1)
  1. TAMIFLU [Suspect]
     Indication: DRUG USE FOR UNKNOWN INDICATION
     Dosage: B.I.D FOR TWO DAYS(TOTAL 4 DOSES TAKEN)
     Route: 048
     Dates: start: 20091221

REACTIONS (2)
  - GASTRODUODENITIS HAEMORRHAGIC [None]
  - KAWASAKI'S DISEASE [None]
